FAERS Safety Report 19439497 (Version 1)
Quarter: 2021Q2

REPORT INFORMATION
  Report Type: Spontaneous
  Country: CN (occurrence: CN)
  Receive Date: 20210619
  Receipt Date: 20210619
  Transmission Date: 20210717
  Serious: Yes (Life-Threatening, Hospitalization, Other)
  Sender: FDA-Public Use
  Company Number: CN-UCBSA-2021028800

PATIENT
  Age: 47 Year
  Sex: Female
  Weight: 52 kg

DRUGS (10)
  1. LEVETIRACETAM. [Suspect]
     Active Substance: LEVETIRACETAM
     Indication: EPILEPSY
     Dosage: 1500.000 MILLIGRAM, 2X/DAY (BID)
     Route: 041
     Dates: start: 20210515, end: 20210529
  2. CARBAMAZEPINE. [Concomitant]
     Active Substance: CARBAMAZEPINE
     Indication: EPILEPSY
     Dosage: UNK
     Dates: end: 20210520
  3. DEPAKINE [VALPROATE SODIUM] [Suspect]
     Active Substance: VALPROATE SODIUM
     Indication: EPILEPSY
  4. OXCARBAZEPINE. [Suspect]
     Active Substance: OXCARBAZEPINE
     Indication: EPILEPSY
     Dosage: 0.300 GRAM, 2X/DAY (BID)
     Route: 045
     Dates: start: 20210520, end: 20210529
  5. LEVETIRACETAM. [Suspect]
     Active Substance: LEVETIRACETAM
     Indication: SEIZURE
     Dosage: 1 GRAM, 3X/DAY (TID)
     Route: 045
     Dates: start: 20210504, end: 20210515
  6. DEPAKINE [VALPROATE SODIUM] [Suspect]
     Active Substance: VALPROATE SODIUM
     Indication: SEIZURE
     Dosage: 1.2 GRAM, ONCE DAILY (QD)
     Dates: start: 20210518, end: 20210525
  7. LEVETIRACETAM. [Suspect]
     Active Substance: LEVETIRACETAM
     Indication: DIZZINESS
     Dosage: 0.500 GRAM, 2X/DAY (BID)
     Route: 045
     Dates: start: 20210501, end: 20210503
  8. DEPAKINE [VALPROATE SODIUM] [Suspect]
     Active Substance: VALPROATE SODIUM
     Indication: DIZZINESS
     Dosage: 1.200 GRAM, 2X/DAY (BID)
     Dates: start: 20210504, end: 20210517
  9. LEVETIRACETAM. [Suspect]
     Active Substance: LEVETIRACETAM
     Indication: EPILEPSY
  10. RITUXIMAB. [Concomitant]
     Active Substance: RITUXIMAB
     Indication: PRODUCT USED FOR UNKNOWN INDICATION
     Dosage: UNK

REACTIONS (2)
  - Seizure [Unknown]
  - Myelosuppression [Recovered/Resolved]

NARRATIVE: CASE EVENT DATE: 20210504
